FAERS Safety Report 13041473 (Version 1)
Quarter: 2016Q4

REPORT INFORMATION
  Report Type: Spontaneous
  Country: US (occurrence: US)
  Receive Date: 20161219
  Receipt Date: 20161219
  Transmission Date: 20170207
  Serious: Yes (Other)
  Sender: FDA-Public Use
  Company Number: US-ROCHE-1217206

PATIENT
  Age: 50 Year
  Sex: Female
  Weight: 86.26 kg

DRUGS (1)
  1. ZELBORAF [Suspect]
     Active Substance: VEMURAFENIB
     Indication: MALIGNANT MELANOMA
     Route: 048
     Dates: start: 20130326, end: 20130403

REACTIONS (5)
  - Feeling abnormal [Unknown]
  - Nausea [Unknown]
  - Sunburn [Recovered/Resolved]
  - Generalised erythema [Recovered/Resolved]
  - Fatigue [Unknown]

NARRATIVE: CASE EVENT DATE: 20130328
